FAERS Safety Report 15938639 (Version 2)
Quarter: 2022Q1

REPORT INFORMATION
  Report Type: Spontaneous
  Country: US (occurrence: US)
  Receive Date: 20190208
  Receipt Date: 20220114
  Transmission Date: 20220423
  Serious: No
  Sender: FDA-Public Use
  Company Number: US-SA-2019SA030932

PATIENT
  Age: 39 Year
  Sex: Female
  Weight: 50.8 kg

DRUGS (1)
  1. DUPIXENT [Suspect]
     Active Substance: DUPILUMAB
     Indication: Dermatitis atopic
     Dosage: 300 MG, QOW
     Route: 058
     Dates: start: 20181230

REACTIONS (3)
  - Lip dry [Unknown]
  - Dry skin [Unknown]
  - Dermatitis atopic [Unknown]
